FAERS Safety Report 4726516-6 (Version None)
Quarter: 2005Q3

REPORT INFORMATION
  Report Type: 
  Country: None (occurrence: None)
  Receive Date: 20050725
  Receipt Date: 20050310
  Transmission Date: 20060218
  Serious: No
  Sender: FDA-Public Use
  Company Number: USA050392992

PATIENT
  Age: 50 Year
  Sex: Male

DRUGS (2)
  1. STRATTERA [Suspect]
     Dosage: 25 MG/2 DAY
  2. CONCERTA [Concomitant]

REACTIONS (1)
  - FEELING OF DESPAIR [None]
